FAERS Safety Report 13769653 (Version 8)
Quarter: 2018Q2

REPORT INFORMATION
  Report Type: Report from Study
  Country: BE (occurrence: BE)
  Receive Date: 20170719
  Receipt Date: 20180613
  Transmission Date: 20180711
  Serious: Yes (Hospitalization)
  Sender: FDA-Public Use
  Company Number: BE-CELGENEUS-BEL-20170701701

PATIENT
  Age: 65 Year
  Sex: Female

DRUGS (24)
  1. DOXORUBICIN [Suspect]
     Active Substance: DOXORUBICIN
     Dosage: 76.5 MILLIGRAM
     Route: 065
     Dates: start: 20170801, end: 20170801
  2. PEGFILGRASTIM [Suspect]
     Active Substance: PEGFILGRASTIM
     Route: 065
     Dates: start: 20170802, end: 20170802
  3. RITUXIMAB. [Suspect]
     Active Substance: RITUXIMAB
     Route: 065
     Dates: start: 20170822, end: 20170822
  4. REVLIMID [Suspect]
     Active Substance: LENALIDOMIDE
     Route: 048
     Dates: start: 20170711, end: 20170717
  5. VINCRISTINE [Suspect]
     Active Substance: VINCRISTINE
     Dosage: 2 MILLIGRAM
     Route: 065
     Dates: start: 20170801, end: 20170801
  6. DOXORUBICIN [Suspect]
     Active Substance: DOXORUBICIN
     Dosage: 78.5 MILLIGRAM
     Route: 065
     Dates: end: 20160704
  7. DOXORUBICIN [Suspect]
     Active Substance: DOXORUBICIN
     Dosage: 76 MILLIGRAM
     Route: 065
     Dates: start: 20170822, end: 20170822
  8. REVLIMID [Suspect]
     Active Substance: LENALIDOMIDE
     Route: 048
     Dates: start: 20170822, end: 20170827
  9. PREDNISONE. [Suspect]
     Active Substance: PREDNISONE
     Dosage: 100 MILLIGRAM
     Route: 065
     Dates: end: 20160704
  10. PREDNISONE. [Suspect]
     Active Substance: PREDNISONE
     Dosage: 100 MILLIGRAM
     Route: 065
     Dates: start: 20170801, end: 20170805
  11. CYCLOPHOSPHAMIDE. [Suspect]
     Active Substance: CYCLOPHOSPHAMIDE
     Dosage: 1148 MILLIGRAM
     Route: 065
     Dates: start: 20170801, end: 20170801
  12. PREDNISONE. [Suspect]
     Active Substance: PREDNISONE
     Dosage: 100 MILLIGRAM
     Route: 065
     Dates: start: 20170822, end: 20170826
  13. REVLIMID [Suspect]
     Active Substance: LENALIDOMIDE
     Indication: B-CELL LYMPHOMA
     Route: 048
     Dates: start: 20170802, end: 20170807
  14. CYCLOPHOSPHAMIDE. [Suspect]
     Active Substance: CYCLOPHOSPHAMIDE
     Dosage: 1140 MILLIGRAM
     Route: 065
     Dates: start: 20170822, end: 20170822
  15. VINCRISTINE [Suspect]
     Active Substance: VINCRISTINE
     Indication: B-CELL LYMPHOMA
     Dosage: 2 MILLIGRAM
     Route: 065
     Dates: start: 20170704, end: 20170704
  16. REVLIMID [Suspect]
     Active Substance: LENALIDOMIDE
     Route: 048
     Dates: start: 20170704, end: 20170705
  17. VINCRISTINE [Suspect]
     Active Substance: VINCRISTINE
     Dosage: 2 MILLIGRAM
     Route: 065
     Dates: end: 20160704
  18. RITUXIMAB. [Suspect]
     Active Substance: RITUXIMAB
     Indication: B-CELL LYMPHOMA
     Route: 065
     Dates: start: 20170801, end: 20170801
  19. CYCLOPHOSPHAMIDE. [Suspect]
     Active Substance: CYCLOPHOSPHAMIDE
     Indication: B-CELL LYMPHOMA
     Dosage: 11.78 MILLIGRAM
     Route: 065
     Dates: start: 20140704, end: 20170704
  20. DOXORUBICIN [Suspect]
     Active Substance: DOXORUBICIN
     Indication: B-CELL LYMPHOMA
     Dosage: 78.5 MILLIGRAM
     Route: 065
     Dates: start: 20170704, end: 20170704
  21. CYCLOPHOSPHAMIDE. [Suspect]
     Active Substance: CYCLOPHOSPHAMIDE
     Dosage: 11.78 MILLIGRAM
     Route: 065
     Dates: end: 20160704
  22. VINCRISTINE [Suspect]
     Active Substance: VINCRISTINE
     Dosage: 2 MILLIGRAM
     Route: 065
     Dates: start: 20170822, end: 20170822
  23. PREDNISONE. [Suspect]
     Active Substance: PREDNISONE
     Indication: B-CELL LYMPHOMA
     Dosage: 100 MILLIGRAM
     Route: 065
     Dates: start: 20170704, end: 20170708
  24. PEGFILGRASTIM [Suspect]
     Active Substance: PEGFILGRASTIM
     Indication: B-CELL LYMPHOMA
     Route: 065
     Dates: start: 20170705, end: 20170705

REACTIONS (5)
  - Febrile neutropenia [Recovered/Resolved]
  - Pyrexia [Recovered/Resolved]
  - Febrile neutropenia [Recovered/Resolved]
  - Colitis [Recovered/Resolved]
  - Diverticulitis [Recovered/Resolved]

NARRATIVE: CASE EVENT DATE: 20170706
